FAERS Safety Report 6420997-8 (Version None)
Quarter: 2009Q4

REPORT INFORMATION
  Report Type: 
  Country: None (occurrence: None)
  Receive Date: 20091030
  Receipt Date: 20091022
  Transmission Date: 20100525
  Serious: Yes (Other)
  Sender: FDA-Public Use
  Company Number: DE-ROCHE-663929

PATIENT
  Sex: Female

DRUGS (4)
  1. BONIVA [Suspect]
     Indication: OSTEOPOROSIS
     Route: 048
     Dates: start: 20090913
  2. RAMIPRIL [Concomitant]
     Indication: HYPERTENSION
     Dosage: DOSE: 1
     Dates: start: 20090929
  3. THYRONAJOD [Concomitant]
     Dosage: START DATE REPROTED AS 21 JULY
  4. SUBREUM [Concomitant]
     Dosage: DOSE: 1; START DATE REPORTED AS 21 JULY

REACTIONS (1)
  - FOREIGN BODY [None]
